FAERS Safety Report 13332780 (Version 1)
Quarter: 2017Q1

REPORT INFORMATION
  Report Type: Spontaneous
  Country: FR (occurrence: FR)
  Receive Date: 20170314
  Receipt Date: 20170314
  Transmission Date: 20170428
  Serious: Yes (Other)
  Sender: FDA-Public Use
  Company Number: FR-BION-006071

PATIENT
  Age: 17 Year
  Sex: Female

DRUGS (2)
  1. IBUPROFEN UNKNOWN PRODUCT [Suspect]
     Active Substance: IBUPROFEN
     Indication: ARTHRALGIA
     Dosage: INCREASED BY SELF, 400 MG 4 TIMES A DAY TO 400 MG 8 TIMES A DAY 3 MONTHS LATER, IN APR-2013
     Dates: start: 201302
  2. MIRTAZAPINE. [Concomitant]
     Active Substance: MIRTAZAPINE
     Indication: ANXIETY
     Dates: start: 201303

REACTIONS (8)
  - Withdrawal syndrome [Recovered/Resolved]
  - Tremor [Recovered/Resolved]
  - Irritability [Unknown]
  - Substance dependence [Unknown]
  - Hyperhidrosis [Recovered/Resolved]
  - Anxiety [Recovered/Resolved]
  - Drug ineffective [Not Recovered/Not Resolved]
  - Headache [Unknown]
